FAERS Safety Report 16990515 (Version 1)
Quarter: 2019Q4

REPORT INFORMATION
  Report Type: Spontaneous
  Country: US (occurrence: US)
  Receive Date: 20191104
  Receipt Date: 20191104
  Transmission Date: 20200122
  Serious: Yes (Life-Threatening, Other)
  Sender: FDA-Public Use
  Company Number: US-GLAXOSMITHKLINE-US2019GSK138173

PATIENT
  Age: 22 Year

DRUGS (5)
  1. PROPOFOL. [Suspect]
     Active Substance: PROPOFOL
     Indication: SEIZURE
     Dosage: UNK
  2. MIDAZOLAM [Suspect]
     Active Substance: MIDAZOLAM HYDROCHLORIDE
     Indication: SEIZURE
     Dosage: UNK
  3. LEVETIRACETAM. [Suspect]
     Active Substance: LEVETIRACETAM
     Indication: SEIZURE
     Dosage: UNK
  4. BUPROPION. [Suspect]
     Active Substance: BUPROPION
     Indication: PRODUCT USED FOR UNKNOWN INDICATION
     Dosage: UNK
  5. FLUOXETINE [Suspect]
     Active Substance: FLUOXETINE HYDROCHLORIDE
     Indication: PRODUCT USED FOR UNKNOWN INDICATION
     Dosage: UNK

REACTIONS (26)
  - Serotonin syndrome [Recovered/Resolved]
  - Hypotension [Unknown]
  - Unresponsive to stimuli [Unknown]
  - Blood creatinine increased [Unknown]
  - Pyrexia [Unknown]
  - Substance-induced mood disorder [Unknown]
  - Tonic clonic movements [Unknown]
  - Myoclonus [Unknown]
  - Blood creatine phosphokinase increased [Unknown]
  - Mental status changes [Unknown]
  - Corneal light reflex test abnormal [Unknown]
  - Overdose [Unknown]
  - Status epilepticus [Unknown]
  - Pupil fixed [Unknown]
  - Leukocytosis [Unknown]
  - Seizure [Unknown]
  - Vomiting [Unknown]
  - Blood bicarbonate decreased [Unknown]
  - Pneumonia aspiration [Unknown]
  - Drug ineffective [Unknown]
  - Muscle rigidity [Recovered/Resolved]
  - Hyporeflexia [Unknown]
  - Lactic acidosis [Unknown]
  - Alcohol poisoning [Unknown]
  - Drug interaction [Unknown]
  - Clonus [Unknown]
